FAERS Safety Report 9935307 (Version 2)
Quarter: 2014Q1

REPORT INFORMATION
  Report Type: Spontaneous
  Country: DE (occurrence: DE)
  Receive Date: 20140228
  Receipt Date: 20140326
  Transmission Date: 20141002
  Serious: Yes (Death, Hospitalization, Other)
  Sender: FDA-Public Use
  Company Number: DE-B.I. PHARMACEUTICALS,INC./RIDGEFIELD-2014-BI-08712DE

PATIENT
  Age: 74 Year
  Sex: Female
  Weight: 65 kg

DRUGS (13)
  1. PRADAXA [Suspect]
     Indication: ATRIAL FIBRILLATION
     Dosage: 220 MG
     Route: 048
     Dates: start: 20121025, end: 20130901
  2. PRADAXA [Suspect]
     Indication: ATRIAL FIBRILLATION
  3. TRI THIAZID 50/25 [Concomitant]
     Indication: CARDIAC FAILURE
     Dosage: 1 ANZ
     Route: 048
  4. RAMIPRIL [Concomitant]
     Indication: CARDIAC FAILURE
     Dosage: 5 MG
     Route: 048
  5. RAMIPRIL [Concomitant]
     Indication: BLOOD PRESSURE
  6. TRAMAL LONG [Concomitant]
     Indication: BACK PAIN
     Dosage: 1 ANZ
     Route: 048
  7. TRAMAL LONG [Concomitant]
     Indication: BACK PAIN
  8. SIMVASTATIN [Concomitant]
     Indication: LIPID METABOLISM DISORDER
     Dosage: 40 MG
     Route: 048
  9. RISPERIDONE [Concomitant]
     Dosage: 2 MG
     Route: 048
  10. METOPROLOL [Concomitant]
     Route: 065
  11. FERRO SANOL [Concomitant]
     Dosage: 2 ANZ
     Route: 065
  12. VIGANTOLETTEN [Concomitant]
     Dosage: 1 ANZ
     Route: 065
  13. DIGIMERCK [Concomitant]
     Dosage: 0.07 MG
     Route: 065

REACTIONS (10)
  - Gastrointestinal haemorrhage [Fatal]
  - Shock haemorrhagic [Fatal]
  - Cardiogenic shock [Fatal]
  - Intestinal haemorrhage [Unknown]
  - Haemoglobin decreased [Unknown]
  - Hemiparesis [Unknown]
  - Gastrointestinal angiodysplasia [Unknown]
  - Melaena [Unknown]
  - Haematochezia [Unknown]
  - Occult blood [Unknown]
